FAERS Safety Report 17196604 (Version 1)
Quarter: 2019Q4

REPORT INFORMATION
  Report Type: Spontaneous
  Country: IT (occurrence: IT)
  Receive Date: 20191224
  Receipt Date: 20191224
  Transmission Date: 20200122
  Serious: Yes (Other)
  Sender: FDA-Public Use
  Company Number: IT-PFIZER INC-2019548024

PATIENT
  Sex: Male
  Weight: 100 kg

DRUGS (3)
  1. EPIRUBICIN HCL [Suspect]
     Active Substance: EPIRUBICIN HYDROCHLORIDE
     Indication: SARCOMA
     Dosage: 120 MG, UNK (ENDOVENOUS)
     Route: 042
     Dates: start: 20191029, end: 20191030
  2. HOLOXAN [Suspect]
     Active Substance: IFOSFAMIDE
     Indication: SARCOMA
     Dosage: 4500 MG, CYCLIC (1 VIAL, ENDOVENOUS)
     Route: 042
     Dates: start: 20191029, end: 20191030
  3. UROMITEXAN [Suspect]
     Active Substance: MESNA
     Indication: PROPHYLAXIS
     Dosage: UNK (400 MG/ 4ML)

REACTIONS (3)
  - Acute kidney injury [Recovered/Resolved with Sequelae]
  - Hypercreatininaemia [Recovered/Resolved with Sequelae]
  - Haematuria [Recovered/Resolved with Sequelae]

NARRATIVE: CASE EVENT DATE: 20191104
